FAERS Safety Report 4418301-X (Version None)
Quarter: 2004Q3

REPORT INFORMATION
  Report Type: 
  Country: None (occurrence: None)
  Receive Date: 20040809
  Receipt Date: 20040128
  Transmission Date: 20050211
  Serious: No
  Sender: FDA-Public Use
  Company Number: US-GLAXOSMITHKLINE-A0496525A

PATIENT
  Age: 26 Year
  Sex: Female

DRUGS (1)
  1. PAXIL CR [Suspect]
     Indication: ILL-DEFINED DISORDER
     Route: 048

REACTIONS (6)
  - DRY MOUTH [None]
  - HYPERHIDROSIS [None]
  - LACRIMATION INCREASED [None]
  - SINUS CONGESTION [None]
  - SOMNOLENCE [None]
  - TONSILLAR DISORDER [None]
